FAERS Safety Report 8967637 (Version 1)
Quarter: 2012Q4

REPORT INFORMATION
  Report Type: Spontaneous
  Country: JP (occurrence: None)
  Receive Date: 20121204
  Receipt Date: 20121204
  Transmission Date: 20130627
  Serious: Yes (Death, Hospitalization)
  Sender: FDA-Public Use
  Company Number: TCI2012A06822

PATIENT
  Age: 97 Year
  Sex: Male

DRUGS (5)
  1. TAKEPRON [Suspect]
     Indication: GASTRIC ULCER PROPHYLAXIS
     Route: 048
     Dates: start: 20110830
  2. BAYASPIRIN (ACETYLSALICYLIC ACID) [Concomitant]
  3. DONEPEZIL HYDROCHLORIDE [Concomitant]
  4. PRELAZINE (CILOSTAZOL) [Concomitant]
  5. OPAPROSMON (LIMAPROST) [Concomitant]

REACTIONS (1)
  - Pneumonia aspiration [None]
